FAERS Safety Report 24154580 (Version 1)
Quarter: 2024Q3

REPORT INFORMATION
  Report Type: Other
  Country: US (occurrence: US)
  Receive Date: 20240731
  Receipt Date: 20240731
  Transmission Date: 20241017
  Serious: Yes (Disabling, Other)
  Sender: DEXCEL
  Company Number: US-DEXPHARM-2024-2479

PATIENT
  Age: 59 Year
  Sex: Female

DRUGS (6)
  1. VITAMIN B12 [Concomitant]
     Active Substance: CYANOCOBALAMIN
  2. GABAPENTIN [Concomitant]
     Active Substance: GABAPENTIN
  3. MELOXICAM [Concomitant]
     Active Substance: MELOXICAM
  4. TIZANIDINE [Concomitant]
     Active Substance: TIZANIDINE
  5. DEXAMETHASONE [Interacting]
     Active Substance: DEXAMETHASONE
     Dosage: SHE HAD A PRIOR INJECTION ELSEWHERE WITH DEXAMETHASONE INTO THE LEFT THUMB CMC JOINT
  6. TRIAMCINOLONE [Interacting]
     Active Substance: TRIAMCINOLONE

REACTIONS (3)
  - Hypersensitivity [Recovered/Resolved]
  - Osteonecrosis [Recovered/Resolved]
  - Hypersensitivity [Recovered/Resolved]
